FAERS Safety Report 18451051 (Version 2)
Quarter: 2020Q4

REPORT INFORMATION
  Report Type: Spontaneous
  Country: ES (occurrence: ES)
  Receive Date: 20201030
  Receipt Date: 20201223
  Transmission Date: 20210114
  Serious: Yes (Other)
  Sender: FDA-Public Use
  Company Number: ES-GILEAD-2020-0502166

PATIENT
  Age: 53 Year
  Sex: Male

DRUGS (1)
  1. BIKTARVY [Suspect]
     Active Substance: BICTEGRAVIR SODIUM\EMTRICITABINE\TENOFOVIR ALAFENAMIDE FUMARATE
     Indication: HIV INFECTION
     Dosage: UNK
     Route: 048
     Dates: start: 20200910, end: 20201020

REACTIONS (2)
  - Paraesthesia [Recovering/Resolving]
  - Myelitis [Recovering/Resolving]

NARRATIVE: CASE EVENT DATE: 20200915
